FAERS Safety Report 6136744-3 (Version None)
Quarter: 2009Q1

REPORT INFORMATION
  Report Type: 
  Country: None (occurrence: None)
  Receive Date: 20090330
  Receipt Date: 20090320
  Transmission Date: 20090719
  Serious: Yes (Other)
  Sender: FDA-Public Use
  Company Number: CN-PFIZER INC-2009187808

PATIENT

DRUGS (1)
  1. CAMPTOSAR [Suspect]
     Indication: COLORECTAL CANCER
     Route: 042

REACTIONS (1)
  - THROMBOCYTOPENIC PURPURA [None]
